FAERS Safety Report 25739158 (Version 2)
Quarter: 2025Q3

REPORT INFORMATION
  Report Type: Spontaneous
  Country: US (occurrence: US)
  Receive Date: 20250829
  Receipt Date: 20250917
  Transmission Date: 20251021
  Serious: No
  Sender: BIOGEN
  Company Number: US-BIOGEN-2025BI01321501

PATIENT
  Sex: Male

DRUGS (1)
  1. TECFIDERA [Suspect]
     Active Substance: DIMETHYL FUMARATE
     Indication: Multiple sclerosis
     Route: 050
     Dates: start: 20180613, end: 20220101

REACTIONS (6)
  - Dental caries [Unknown]
  - Dysgraphia [Unknown]
  - Tooth loss [Unknown]
  - Feeling hot [Unknown]
  - Erythema [Unknown]
  - Burning sensation [Unknown]
